FAERS Safety Report 6330331-X (Version None)
Quarter: 2009Q3

REPORT INFORMATION
  Report Type: 
  Country: None (occurrence: None)
  Receive Date: 20090827
  Receipt Date: 20071112
  Transmission Date: 20100115
  Serious: Yes (Other)
  Sender: FDA-Public Use
  Company Number: US-ASTRAZENECA-2006UW21902

PATIENT
  Age: 15750 Day
  Sex: Female
  Weight: 114.8 kg

DRUGS (5)
  1. SEROQUEL [Suspect]
     Indication: BIPOLAR DISORDER
     Route: 048
  2. HALDOL [Concomitant]
     Dates: start: 20030101
  3. AMARYL [Concomitant]
     Route: 048
     Dates: start: 19990526
  4. ZYPREXA [Concomitant]
     Route: 048
     Dates: start: 20011102
  5. ACTOS [Concomitant]
     Dates: start: 20060606

REACTIONS (6)
  - ANXIETY [None]
  - DIABETES MELLITUS [None]
  - DIABETES MELLITUS INADEQUATE CONTROL [None]
  - DIABETIC NEPHROPATHY [None]
  - SUICIDAL IDEATION [None]
  - TREMOR [None]
